FAERS Safety Report 10118401 (Version 1)
Quarter: 2014Q2

REPORT INFORMATION
  Report Type: Spontaneous
  Country: US (occurrence: US)
  Receive Date: 20140425
  Receipt Date: 20140425
  Transmission Date: 20141212
  Serious: No
  Sender: FDA-Public Use
  Company Number: US-TEVA-477993USA

PATIENT
  Sex: Male

DRUGS (1)
  1. COPAXONE [Suspect]

REACTIONS (3)
  - Chest discomfort [Recovered/Resolved]
  - Fear [Unknown]
  - Adverse event [Unknown]
